FAERS Safety Report 24164017 (Version 1)
Quarter: 2024Q3

REPORT INFORMATION
  Report Type: Spontaneous
  Country: IT (occurrence: IT)
  Receive Date: 20240801
  Receipt Date: 20240801
  Transmission Date: 20241017
  Serious: Yes (Life-Threatening, Hospitalization, Other)
  Sender: BIOVITRUM
  Company Number: IT-BIOVITRUM-2024-IT-010383

PATIENT
  Weight: 85 kg

DRUGS (1)
  1. GAMIFANT [Suspect]
     Active Substance: EMAPALUMAB-LZSG
     Indication: Haemophagocytic lymphohistiocytosis
     Dosage: TWICE A WEEK FOR TWO WEEKS
     Dates: start: 20240727

REACTIONS (5)
  - Gastrointestinal haemorrhage [Unknown]
  - Haemophagocytic lymphohistiocytosis [Recovering/Resolving]
  - Laboratory test abnormal [Recovering/Resolving]
  - Condition aggravated [Recovering/Resolving]
  - Off label use [Unknown]
